FAERS Safety Report 10930468 (Version 1)
Quarter: 2015Q1

REPORT INFORMATION
  Report Type: Spontaneous
  Country: US (occurrence: None)
  Receive Date: 20150318
  Receipt Date: 20150318
  Transmission Date: 20150721
  Serious: Yes (Hospitalization)
  Sender: FDA-Public Use
  Company Number: None

PATIENT
  Age: 64 Year
  Sex: Female
  Weight: 63 kg

DRUGS (5)
  1. LEVOTHYROXINE [Concomitant]
     Active Substance: LEVOTHYROXINE
  2. INTRON A [Suspect]
     Active Substance: INTERFERON ALFA-2B
     Dosage: 187 MU
     Dates: end: 20140103
  3. PROCHLORPERAZINE. [Concomitant]
     Active Substance: PROCHLORPERAZINE
  4. ZOFRAN [Concomitant]
     Active Substance: ONDANSETRON HYDROCHLORIDE
  5. DIAZEPAM. [Concomitant]
     Active Substance: DIAZEPAM

REACTIONS (6)
  - Vertigo [None]
  - Dizziness [None]
  - Abasia [None]
  - Dysstasia [None]
  - Nuclear magnetic resonance imaging brain abnormal [None]
  - Retinopathy [None]

NARRATIVE: CASE EVENT DATE: 20140104
